FAERS Safety Report 5751371-5 (Version None)
Quarter: 2008Q2

REPORT INFORMATION
  Report Type: 
  Country: None (occurrence: None)
  Receive Date: 20080528
  Receipt Date: 20080516
  Transmission Date: 20081010
  Serious: Yes (Other)
  Sender: FDA-Public Use
  Company Number: BR-PFIZER INC-2008043443

PATIENT
  Age: 50 Year
  Sex: Female

DRUGS (1)
  1. CHANTIX [Suspect]
     Indication: EX-SMOKER
     Route: 048

REACTIONS (12)
  - BLOOD PRESSURE DECREASED [None]
  - COLD SWEAT [None]
  - CONSTIPATION [None]
  - DRY MOUTH [None]
  - DYSPNOEA [None]
  - FEELING ABNORMAL [None]
  - GASTRITIS [None]
  - HEADACHE [None]
  - INSOMNIA [None]
  - NAUSEA [None]
  - SPEECH DISORDER [None]
  - VOMITING [None]
